FAERS Safety Report 9497573 (Version 1)
Quarter: 2013Q3

REPORT INFORMATION
  Report Type: Spontaneous
  Country: US (occurrence: None)
  Receive Date: 20130903
  Receipt Date: 20130903
  Transmission Date: 20140515
  Serious: Yes (Other)
  Sender: FDA-Public Use
  Company Number: None

PATIENT
  Age: 44 Year
  Sex: Female
  Weight: 62.6 kg

DRUGS (2)
  1. BOTOX [Suspect]
     Indication: SKIN COSMETIC PROCEDURE
     Dosage: 25 UNITS.
  2. BOTOX [Suspect]
     Indication: SKIN WRINKLING
     Dosage: 25 UNITS.

REACTIONS (4)
  - Influenza like illness [None]
  - Nausea [None]
  - Oropharyngeal pain [None]
  - Myalgia [None]
